FAERS Safety Report 6640513-5 (Version None)
Quarter: 2010Q1

REPORT INFORMATION
  Report Type: 
  Country: None (occurrence: None)
  Receive Date: 20100318
  Receipt Date: 20100308
  Transmission Date: 20100710
  Serious: Yes (Other)
  Sender: FDA-Public Use
  Company Number: GXKR2010DK00952

PATIENT
  Sex: Male

DRUGS (7)
  1. METHOTREXATE [Suspect]
     Dosage: 15 MG, QW
     Route: 065
     Dates: start: 20080409
  2. METHOTREXATE [Suspect]
     Dosage: 20 MG, QW
     Route: 065
     Dates: start: 20080715
  3. METOJECT [Concomitant]
     Dosage: 25 MG, ONCE/SINGLE
  4. LANSOPRAZOLE [Concomitant]
     Dosage: 15 MG, ONCE/SINGLE
     Route: 065
  5. ARAVA [Concomitant]
     Dosage: 20 MG, UNK
     Route: 065
  6. DEPO-MEDROL [Concomitant]
     Indication: RHEUMATOID ARTHRITIS
     Dosage: 80 MG, UNK
     Route: 030
     Dates: start: 20080409
  7. FOLIMET [Concomitant]
     Dosage: 5 MG, QW
     Route: 048
     Dates: start: 20090409

REACTIONS (3)
  - DENTAL CARIES [None]
  - SKIN INJURY [None]
  - TOOTH FRACTURE [None]
